FAERS Safety Report 8448767-X (Version None)
Quarter: 2012Q2

REPORT INFORMATION
  Report Type: 
  Country: None (occurrence: None)
  Receive Date: 20120613
  Receipt Date: 20120529
  Transmission Date: 20120825
  Serious: Yes (Hospitalization)
  Sender: FDA-Public Use
  Company Number: DSJ-2012-07685

PATIENT
  Age: 80 Year
  Sex: Male
  Weight: 73 kg

DRUGS (17)
  1. ALLOPURINOL [Concomitant]
  2. MAINTATE (BISOPROLOL FUAMRATE) [Concomitant]
  3. LASIX [Concomitant]
  4. CALBLOCK (AZELNIDIPINE) (TABLET) [Concomitant]
  5. JANUVIA [Concomitant]
  6. OLMESARTAN MEDOXOMIL [Suspect]
     Indication: PRODUCT USED FOR UNKNOWN INDICATION
     Dosage: 20 MG, PER ORAL
     Route: 048
     Dates: start: 20070723, end: 20101214
  7. BEPRICOR (BEPRIDIL) (TABLET) [Suspect]
     Indication: PRODUCT USED FOR UNKNOWN INDICATION
     Dosage: 100 MG
     Dates: start: 20100811, end: 20110705
  8. SELARA (EPLERENONE) [Concomitant]
  9. MAGMITT (MAGNESIUM OXIDE) [Concomitant]
  10. NORVASC [Concomitant]
  11. ISOSORBIDE MONONITRATE [Concomitant]
  12. PURSENNID (SENNA ALEXANDRINA LEAF) [Concomitant]
  13. ACTOS [Concomitant]
  14. METGLUCO (METFROMIN HYDROCHLORIDE) [Concomitant]
  15. PERDIPINE LA (NICARDIPINE HYDROCHLORIDE) [Concomitant]
  16. WARFARIN SODIUM [Concomitant]
  17. MAGNESIUM OXIDE (MAGNESIUM OXIDE) [Concomitant]

REACTIONS (3)
  - BLOOD PRESSURE DECREASED [None]
  - CARDIAC FAILURE ACUTE [None]
  - POLYDIPSIA [None]
